FAERS Safety Report 8471867-5 (Version None)
Quarter: 2012Q2

REPORT INFORMATION
  Report Type: 
  Country: None (occurrence: None)
  Receive Date: 20120627
  Receipt Date: 20120619
  Transmission Date: 20120825
  Serious: Yes (Hospitalization)
  Sender: FDA-Public Use
  Company Number: US-BAYER-2012-062385

PATIENT
  Age: 44 Year
  Sex: Female
  Weight: 57 kg

DRUGS (5)
  1. YAZ [Suspect]
  2. YASMIN [Suspect]
  3. ULTRAM [Concomitant]
     Indication: PAIN
     Dosage: 50 MG, PRN
  4. COLACE [Concomitant]
     Dosage: 100 MG, BID
  5. CLONAZEPAM [Concomitant]
     Dosage: UNK
     Dates: start: 20111027

REACTIONS (2)
  - PULMONARY EMBOLISM [None]
  - DEEP VEIN THROMBOSIS [None]
